FAERS Safety Report 7971078-3 (Version None)
Quarter: 2011Q4

REPORT INFORMATION
  Report Type: 
  Country: None (occurrence: None)
  Receive Date: 20111212
  Receipt Date: 20111212
  Transmission Date: 20120403
  Serious: No
  Sender: FDA-Public Use
  Company Number: None

PATIENT
  Sex: Female
  Weight: 49.895 kg

DRUGS (1)
  1. THERAFLU -IN POWER FORM- [Suspect]

REACTIONS (4)
  - NAUSEA [None]
  - RASH [None]
  - ABDOMINAL DISCOMFORT [None]
  - HYPERSENSITIVITY [None]
